FAERS Safety Report 5273385-4 (Version None)
Quarter: 2007Q1

REPORT INFORMATION
  Report Type: 
  Country: None (occurrence: None)
  Receive Date: 20070322
  Receipt Date: 20070312
  Transmission Date: 20070707
  Serious: Yes (Other)
  Sender: FDA-Public Use
  Company Number: DE-ELI_LILLY_AND_COMPANY-DE200703002793

PATIENT
  Age: 12 Year
  Sex: Male
  Weight: 51.9 kg

DRUGS (2)
  1. STRATTERA [Suspect]
     Indication: ATTENTION DEFICIT/HYPERACTIVITY DISORDER
     Dosage: 25 MG, EACH MORNING
     Route: 048
     Dates: start: 20070110, end: 20070116
  2. STRATTERA [Suspect]
     Dosage: 60 MG, EACH MORNING
     Route: 048
     Dates: start: 20070117, end: 20070101

REACTIONS (3)
  - DEPRESSION [None]
  - INTENTIONAL SELF-INJURY [None]
  - SUICIDAL IDEATION [None]
